FAERS Safety Report 8214763-0 (Version None)
Quarter: 2012Q1

REPORT INFORMATION
  Report Type: 
  Country: None (occurrence: None)
  Receive Date: 20120316
  Receipt Date: 20120302
  Transmission Date: 20120608
  Serious: Yes (Other)
  Sender: FDA-Public Use
  Company Number: AU-ELI_LILLY_AND_COMPANY-AU201203000882

PATIENT
  Sex: Female

DRUGS (5)
  1. FLUOXETINE HCL [Suspect]
     Indication: DEPRESSION
     Dosage: 20 MG, QD
     Route: 065
     Dates: start: 20010101, end: 20110727
  2. TEMAZEPAM [Concomitant]
     Dosage: UNK
     Dates: start: 20010101
  3. PLAVIX [Concomitant]
     Dosage: UNK
     Dates: start: 20060101
  4. FLUOXETINE HCL [Suspect]
     Dosage: UNK
     Route: 065
     Dates: start: 20110824
  5. ZOCOR [Concomitant]
     Dosage: UNK
     Dates: start: 20010101

REACTIONS (5)
  - ROAD TRAFFIC ACCIDENT [None]
  - SUICIDE ATTEMPT [None]
  - SLEEP DISORDER [None]
  - CONDITION AGGRAVATED [None]
  - DEPRESSED MOOD [None]
